FAERS Safety Report 16936473 (Version 1)
Quarter: 2019Q4

REPORT INFORMATION
  Report Type: Spontaneous
  Country: US (occurrence: US)
  Receive Date: 20190828
  Receipt Date: 20190828
  Transmission Date: 20200122
  Serious: Yes (Hospitalization)
  Sender: FDA-Public Use
  Company Number: None

PATIENT
  Age: 64 Year
  Sex: Male

DRUGS (1)
  1. VOSEVI [Suspect]
     Active Substance: SOFOSBUVIR\VELPATASVIR\VOXILAPREVIR
     Dosage: 400MG-100GM
     Route: 048
     Dates: start: 20190807

REACTIONS (7)
  - Flushing [None]
  - Headache [None]
  - Nausea [None]
  - Cystic fibrosis [None]
  - Kidney infection [None]
  - Condition aggravated [None]
  - Diarrhoea [None]

NARRATIVE: CASE EVENT DATE: 20190821
